FAERS Safety Report 4660477-3 (Version None)
Quarter: 2005Q2

REPORT INFORMATION
  Report Type: 
  Country: None (occurrence: None)
  Receive Date: 20050512
  Receipt Date: 20050123
  Transmission Date: 20051028
  Serious: Yes (Hospitalization)
  Sender: FDA-Public Use
  Company Number: DE-GLAXOSMITHKLINE-D0045703A

PATIENT
  Age: 40 Year
  Sex: Male

DRUGS (2)
  1. AUGMENTIN [Suspect]
     Dosage: 1000MG UNKNOWN
     Route: 065
     Dates: start: 20050104, end: 20050105
  2. ANALGESIC [Concomitant]
     Route: 065
     Dates: end: 20050101

REACTIONS (3)
  - CHEST PAIN [None]
  - MYOCARDIAL INFARCTION [None]
  - THROMBOCYTHAEMIA [None]
